FAERS Safety Report 8758632 (Version 2)
Quarter: 2013Q1

REPORT INFORMATION
  Report Type: Spontaneous
  Country: NO (occurrence: NO)
  Receive Date: 20120829
  Receipt Date: 20130110
  Transmission Date: 20140127
  Serious: Yes (Life-Threatening, Hospitalization, Other)
  Sender: FDA-Public Use
  Company Number: NO-009507513-1202NOR00026

PATIENT
  Age: 58 Year
  Sex: Male

DRUGS (2)
  1. IVEMEND [Suspect]
     Dosage: 150 MG
     Dates: start: 20120216
  2. ELOXATIN [Suspect]
     Indication: COLON CANCER
     Dosage: 85 MG/M2, UNK
     Route: 041

REACTIONS (1)
  - Haemolytic uraemic syndrome [Recovering/Resolving]
